FAERS Safety Report 6528254-6 (Version None)
Quarter: 2010Q1

REPORT INFORMATION
  Report Type: 
  Country: None (occurrence: None)
  Receive Date: 20100106
  Receipt Date: 20091215
  Transmission Date: 20100710
  Serious: Yes (Death)
  Sender: FDA-Public Use
  Company Number: HU-JNJFOC-20090305960

PATIENT
  Sex: Male
  Weight: 40 kg

DRUGS (8)
  1. BLINDED; TAPENTADOL HYDROCHLORIDE [Suspect]
     Route: 048
     Dates: start: 20090304, end: 20090318
  2. BLINDED; TAPENTADOL HYDROCHLORIDE [Suspect]
     Indication: TUMOUR PAIN
     Route: 048
     Dates: start: 20090304, end: 20090318
  3. MORPHINE SULFATE [Suspect]
     Indication: TUMOUR PAIN
     Route: 048
  4. PLACEBO [Suspect]
     Indication: TUMOUR PAIN
     Route: 048
  5. MEGACE [Concomitant]
     Indication: CACHEXIA
     Route: 065
  6. MEDROL [Concomitant]
     Indication: PALLIATIVE CARE
     Route: 065
  7. NUTRIDRINK [Concomitant]
     Indication: CACHEXIA
     Route: 065
  8. FUROSEMID [Concomitant]
     Indication: PROPHYLAXIS AGAINST DEHYDRATION
     Route: 065

REACTIONS (1)
  - TRISMUS [None]
